FAERS Safety Report 4472019-6 (Version None)
Quarter: 2004Q3

REPORT INFORMATION
  Report Type: 
  Country: None (occurrence: None)
  Receive Date: 20040909
  Receipt Date: 20040604
  Transmission Date: 20050211
  Serious: Yes (Hospitalization)
  Sender: FDA-Public Use
  Company Number: F03200400050

PATIENT
  Age: 59 Year
  Sex: Female
  Weight: 79.5 kg

DRUGS (16)
  1. OXALIPLATIN [Suspect]
     Indication: COLORECTAL CANCER METASTATIC
     Dosage: INTRAVENOUS NOS
     Route: 042
  2. PTK787/ZK 222584 VS. PLACEBO [Suspect]
     Indication: COLORECTAL CANCER METASTATIC
     Dates: start: 20031016, end: 20040121
  3. FU-FLUOURACIL [Suspect]
  4. LEUCOVORIN [Concomitant]
  5. CITALOPRAM HYDROBROMIDE [Concomitant]
  6. ONDANSETRON HCL [Concomitant]
  7. LORATADINE [Concomitant]
  8. CLARITHROMYCIN [Concomitant]
  9. WARFARIN SODIUM [Concomitant]
  10. SERTRALINE HYDROCHLORIDE [Concomitant]
  11. LORAZEPAM [Concomitant]
  12. HYDROCODONE/PHEYNYLTOXOLAMINE [Concomitant]
  13. OXYMETAZOLINE HYDROCHLORIDE [Concomitant]
  14. DIPHENOXYLATE HYDROCHLORIDE [Concomitant]
  15. PROCHLORPERAZIEN EDISYLATE [Concomitant]
  16. ESOMEPRAZOLE [Concomitant]

REACTIONS (8)
  - ABDOMINAL PAIN [None]
  - DEHYDRATION [None]
  - DIARRHOEA [None]
  - HYPOMAGNESAEMIA [None]
  - NAUSEA [None]
  - SMALL INTESTINAL OBSTRUCTION [None]
  - VOMITING [None]
  - WOUND INFECTION [None]
